FAERS Safety Report 9840929 (Version 1)
Quarter: 2013Q4

REPORT INFORMATION
  Report Type: Spontaneous
  Country: US (occurrence: None)
  Receive Date: 20131213
  Receipt Date: 20131213
  Transmission Date: 20140711
  Serious: Yes (Disabling, Other)
  Sender: FDA-Public Use
  Company Number: 2013SCPR006134

PATIENT
  Sex: Female

DRUGS (2)
  1. METOCLOPRAMIDE (METOCLOPRAMIDE) [Suspect]
     Indication: DIABETIC GASTROPARESIS
     Route: 048
     Dates: start: 2004, end: 2008
  2. METOCLOPRAMIDE (METOCLOPRAMIDE) [Suspect]
     Indication: EXPLORATORY OPERATION
     Route: 048
     Dates: start: 2004, end: 2008

REACTIONS (3)
  - Parkinsonism [None]
  - Tardive dyskinesia [None]
  - Extrapyramidal disorder [None]
